FAERS Safety Report 10489611 (Version 1)
Quarter: 2014Q3

REPORT INFORMATION
  Report Type: Spontaneous
  Country: US (occurrence: None)
  Receive Date: 20140815
  Receipt Date: 20140815
  Transmission Date: 20150326
  Serious: Yes (Other)
  Sender: FDA-Public Use
  Company Number: ADR-2013-02212

PATIENT
  Age: 42 Year
  Sex: Female

DRUGS (4)
  1. CLONIDINE. [Suspect]
     Active Substance: CLONIDINE
     Indication: NAUSEA
  2. DILAUDID [Suspect]
     Active Substance: HYDROMORPHONE HYDROCHLORIDE
     Indication: OESTROGEN THERAPY
  3. BACLOFEN INTRATHECAL (2000 MCG/ML) [Suspect]
     Active Substance: BACLOFEN
     Indication: POST LAMINECTOMY SYNDROME
  4. FENTANYL. [Suspect]
     Active Substance: FENTANYL

REACTIONS (6)
  - Nausea [None]
  - Drug withdrawal syndrome [None]
  - Granuloma [None]
  - Pain [None]
  - Feeling of body temperature change [None]
  - Abdominal discomfort [None]
